FAERS Safety Report 12402953 (Version 4)
Quarter: 2016Q4

REPORT INFORMATION
  Report Type: Report from Study
  Country: AR (occurrence: AR)
  Receive Date: 20160525
  Receipt Date: 20161108
  Transmission Date: 20170207
  Serious: Yes (Death, Other)
  Sender: FDA-Public Use
  Company Number: AR-ROCHE-1753422

PATIENT
  Age: 17 Year
  Sex: Female

DRUGS (3)
  1. VISMODEGIB [Suspect]
     Active Substance: VISMODEGIB
     Dosage: DOSE INCREASE
     Route: 065
     Dates: start: 20151014
  2. VISMODEGIB [Suspect]
     Active Substance: VISMODEGIB
     Indication: BASAL CELL CARCINOMA
     Route: 065
     Dates: start: 20150801, end: 20160118
  3. VISMODEGIB [Suspect]
     Active Substance: VISMODEGIB
     Dosage: DOSE DECREASE
     Route: 065
     Dates: start: 20150909, end: 20151013

REACTIONS (4)
  - Disease progression [Fatal]
  - Asthenia [Recovered/Resolved]
  - Hepatic enzyme abnormal [Recovered/Resolved]
  - Fatigue [Recovered/Resolved]

NARRATIVE: CASE EVENT DATE: 20150824
